FAERS Safety Report 5830381-3 (Version None)
Quarter: 2008Q3

REPORT INFORMATION
  Report Type: 
  Country: None (occurrence: None)
  Receive Date: 20080801
  Receipt Date: 20080725
  Transmission Date: 20090109
  Serious: Yes (Other)
  Sender: FDA-Public Use
  Company Number: US-JNJCH-2008020075

PATIENT
  Sex: Female

DRUGS (2)
  1. ZYRTEC [Suspect]
     Route: 065
  2. ZOLOFT [Suspect]
     Indication: BIPOLAR I DISORDER
     Route: 065

REACTIONS (1)
  - TOE AMPUTATION [None]
